FAERS Safety Report 4450545-3 (Version None)
Quarter: 2004Q3

REPORT INFORMATION
  Report Type: 
  Country: None (occurrence: None)
  Receive Date: 20040914
  Receipt Date: 20040831
  Transmission Date: 20050211
  Serious: Yes (Hospitalization)
  Sender: FDA-Public Use
  Company Number: US-2004-031099

PATIENT
  Sex: Male

DRUGS (1)
  1. MAGNEVIST [Suspect]
     Indication: NUCLEAR MAGNETIC RESONANCE IMAGING
     Dosage: 30 ML, 1 DOSE, INTRAVENOUS
     Route: 042
     Dates: start: 20040825, end: 20040825

REACTIONS (1)
  - LOSS OF CONSCIOUSNESS [None]
